FAERS Safety Report 17310055 (Version 1)
Quarter: 2020Q1

REPORT INFORMATION
  Report Type: Spontaneous
  Country: US (occurrence: US)
  Receive Date: 20200123
  Receipt Date: 20200123
  Transmission Date: 20200409
  Serious: No
  Sender: FDA-Public Use
  Company Number: US-ROCHE-2402810

PATIENT
  Sex: Female
  Weight: 55.39 kg

DRUGS (1)
  1. RITUXAN [Suspect]
     Active Substance: RITUXIMAB
     Indication: SYSTEMIC LUPUS ERYTHEMATOSUS
     Route: 041
     Dates: start: 20050101

REACTIONS (6)
  - Malaise [Recovered/Resolved]
  - Headache [Unknown]
  - Intentional product use issue [Unknown]
  - Nausea [Recovered/Resolved]
  - Off label use [Unknown]
  - Somnolence [Recovered/Resolved]

NARRATIVE: CASE EVENT DATE: 2005
